FAERS Safety Report 6137461-6 (Version None)
Quarter: 2009Q1

REPORT INFORMATION
  Report Type: 
  Country: None (occurrence: None)
  Receive Date: 20090330
  Receipt Date: 20090324
  Transmission Date: 20090719
  Serious: Yes (Death)
  Sender: FDA-Public Use
  Company Number: US-GILEAD-2009-0021064

PATIENT
  Sex: Female
  Weight: 63.56 kg

DRUGS (13)
  1. LETAIRIS [Suspect]
     Indication: PULMONARY ARTERIAL HYPERTENSION
     Route: 048
     Dates: start: 20090216
  2. NORVASC [Concomitant]
  3. ALTACE [Concomitant]
  4. ASPIRIN [Concomitant]
  5. RED YEAST RICE [Concomitant]
  6. OXYGEN [Concomitant]
  7. PREDNISONE [Concomitant]
  8. ULTRACET [Concomitant]
  9. PRILOSEC [Concomitant]
  10. XANAX [Concomitant]
  11. MIRALAX [Concomitant]
  12. CALCIUM CITRATE [Concomitant]
  13. COENZYME Q10 [Concomitant]

REACTIONS (1)
  - DEATH [None]
